FAERS Safety Report 14137209 (Version 8)
Quarter: 2022Q3

REPORT INFORMATION
  Report Type: Report from Study
  Country: CA (occurrence: CA)
  Receive Date: 20171027
  Receipt Date: 20220707
  Transmission Date: 20221027
  Serious: Yes (Other)
  Sender: FDA-Public Use
  Company Number: CA-GLAXOSMITHKLINE-CA2017GSK164196

PATIENT

DRUGS (4)
  1. ALBUTEROL SULFATE [Suspect]
     Active Substance: ALBUTEROL SULFATE
     Indication: Product used for unknown indication
     Dosage: UNK
  2. NUCALA [Suspect]
     Active Substance: MEPOLIZUMAB
     Indication: Asthma
     Dosage: 100 MG, Z,MONTHLY
     Route: 042
     Dates: start: 20171129
  3. NUCALA [Suspect]
     Active Substance: MEPOLIZUMAB
     Dosage: 100 MG, Z(MONTHLY)
     Route: 042
     Dates: start: 20171129
  4. NUCALA [Suspect]
     Active Substance: MEPOLIZUMAB
     Dosage: 100 MG, Z,MONTHLY
     Route: 042

REACTIONS (8)
  - Malignant anorectal neoplasm [Unknown]
  - Pneumonia [Unknown]
  - Aspergillus infection [Unknown]
  - Visual impairment [Unknown]
  - Blood pressure increased [Unknown]
  - Anxiety [Unknown]
  - Immune system disorder [Unknown]
  - Full blood count abnormal [Unknown]
